FAERS Safety Report 19567501 (Version 1)
Quarter: 2021Q3

REPORT INFORMATION
  Report Type: Spontaneous
  Country: US (occurrence: US)
  Receive Date: 20210715
  Receipt Date: 20210715
  Transmission Date: 20211014
  Serious: Yes (Other)
  Sender: FDA-Public Use
  Company Number: US-GLENMARK PHARMACEUTICALS-2021GMK063345

PATIENT

DRUGS (1)
  1. RANITIDINE HYDROCHLORIDE. [Suspect]
     Active Substance: RANITIDINE HYDROCHLORIDE
     Indication: SPINAL OPERATION
     Dosage: UNK
     Dates: start: 199801, end: 201901

REACTIONS (3)
  - Hepatic cancer [Unknown]
  - Duodenal neoplasm [Unknown]
  - Breast cancer [Unknown]

NARRATIVE: CASE EVENT DATE: 20161101
